FAERS Safety Report 4307977-3 (Version None)
Quarter: 2004Q1

REPORT INFORMATION
  Report Type: 
  Country: None (occurrence: None)
  Receive Date: 20040301
  Receipt Date: 20030218
  Transmission Date: 20041129
  Serious: No
  Sender: FDA-Public Use
  Company Number: US-BRISTOL-MYERS SQUIBB COMPANY-12189478

PATIENT
  Age: 87 Year
  Sex: Female
  Weight: 64 kg

DRUGS (10)
  1. GLUCOPHAGE [Suspect]
     Indication: DIABETES MELLITUS
     Route: 048
     Dates: start: 19960101
  2. PROPRANOLOL [Concomitant]
  3. DIPYRIDAMOLE [Concomitant]
  4. NITRO PATCH [Concomitant]
  5. DIGOXIN [Concomitant]
  6. COUMADIN [Concomitant]
  7. LASIX [Concomitant]
  8. NORVASC [Concomitant]
  9. BLOOD PRESSURE MEDICATION [Concomitant]
  10. POTASSIUM [Concomitant]

REACTIONS (1)
  - DIARRHOEA [None]
